FAERS Safety Report 22047356 (Version 1)
Quarter: 2023Q1

REPORT INFORMATION
  Report Type: Spontaneous
  Country: US (occurrence: US)
  Receive Date: 20230301
  Receipt Date: 20230301
  Transmission Date: 20230417
  Serious: No
  Sender: FDA-Public Use
  Company Number: US-AMGEN-USASP2023034964

PATIENT
  Age: 71 Year
  Sex: Female

DRUGS (1)
  1. EVENITY [Suspect]
     Active Substance: ROMOSOZUMAB-AQQG
     Indication: Fracture
     Dosage: 210 MILLIGRAM, QMO
     Route: 058
     Dates: start: 202301

REACTIONS (3)
  - Eye pain [Unknown]
  - Headache [Unknown]
  - Facial pain [Unknown]

NARRATIVE: CASE EVENT DATE: 20230222
